FAERS Safety Report 17687148 (Version 1)
Quarter: 2020Q2

REPORT INFORMATION
  Report Type: Report from Study
  Country: None (occurrence: US)
  Receive Date: 20200421
  Receipt Date: 20200421
  Transmission Date: 20200714
  Serious: Yes (Other)
  Sender: FDA-Public Use
  Company Number: US-ABBVIE-17K-163-1960965-00

PATIENT
  Age: 64 Year
  Sex: Female
  Weight: 118.04 kg

DRUGS (1)
  1. HUMIRA [Suspect]
     Active Substance: ADALIMUMAB
     Indication: PSORIASIS
     Route: 058
     Dates: start: 2017

REACTIONS (19)
  - Muscle strain [Unknown]
  - Knee arthroplasty [Recovered/Resolved]
  - Migraine [Recovered/Resolved]
  - Road traffic accident [Unknown]
  - Skin cancer [Unknown]
  - Dry skin [Recovering/Resolving]
  - Pain [Unknown]
  - Ligament sprain [Not Recovered/Not Resolved]
  - Knee arthroplasty [Unknown]
  - Fall [Recovered/Resolved]
  - Migraine [Not Recovered/Not Resolved]
  - Respiratory tract congestion [Not Recovered/Not Resolved]
  - Nail disorder [Recovered/Resolved]
  - Diarrhoea [Not Recovered/Not Resolved]
  - Constipation [Not Recovered/Not Resolved]
  - Contusion [Unknown]
  - Post-traumatic pain [Not Recovered/Not Resolved]
  - Cough [Not Recovered/Not Resolved]
  - Onychoclasis [Recovered/Resolved]

NARRATIVE: CASE EVENT DATE: 2017
